FAERS Safety Report 7231305-7 (Version None)
Quarter: 2011Q1

REPORT INFORMATION
  Report Type: 
  Country: None (occurrence: None)
  Receive Date: 20110107
  Receipt Date: 20101229
  Transmission Date: 20110831
  Serious: Yes (Hospitalization)
  Sender: FDA-Public Use
  Company Number: AXC-2010-000369

PATIENT
  Age: 28 Year
  Sex: Male

DRUGS (1)
  1. MESALAMINE [Suspect]
     Indication: COLITIS ULCERATIVE

REACTIONS (5)
  - RASH [None]
  - HEPATIC ENZYME INCREASED [None]
  - DIARRHOEA HAEMORRHAGIC [None]
  - NEUTROPENIA [None]
  - LEUKOCYTOCLASTIC VASCULITIS [None]
